FAERS Safety Report 4510371-3 (Version None)
Quarter: 2004Q4

REPORT INFORMATION
  Report Type: 
  Country: None (occurrence: None)
  Receive Date: 20041119
  Receipt Date: 20041102
  Transmission Date: 20050328
  Serious: Yes (Hospitalization)
  Sender: FDA-Public Use
  Company Number: EWC040940668

PATIENT
  Age: 81 Year
  Sex: Female

DRUGS (5)
  1. FORSTEO             (TERIPARATDE) [Suspect]
     Indication: OSTEOPOROSIS
     Dosage: 20 UG/1 DAY
     Dates: start: 20040601, end: 20040913
  2. KALPRESS (VALSARTAN) [Concomitant]
  3. NATECAL (CALCIUM CARBONATE) [Concomitant]
  4. ACTONEL [Concomitant]
  5. PREVENCOR           (ATORVASTATIN CALCIUM) [Concomitant]

REACTIONS (7)
  - ANGINA UNSTABLE [None]
  - CHEST PAIN [None]
  - DIZZINESS [None]
  - ELECTROCARDIOGRAM ABNORMAL [None]
  - FATIGUE [None]
  - MYOCARDIAL ISCHAEMIA [None]
  - VENTRICULAR HYPERTROPHY [None]
